FAERS Safety Report 24531487 (Version 1)
Quarter: 2024Q4

REPORT INFORMATION
  Report Type: Report from Study
  Country: US (occurrence: US)
  Receive Date: 20241022
  Receipt Date: 20241022
  Transmission Date: 20250115
  Serious: No
  Sender: ROCHE
  Company Number: US-ROCHE-3503721

PATIENT
  Age: 39 Year
  Sex: Male
  Weight: 75.3 kg

DRUGS (9)
  1. PULMOZYME [Suspect]
     Active Substance: DORNASE ALFA
     Indication: Cystic fibrosis
     Route: 045
  2. PULMOZYME [Suspect]
     Active Substance: DORNASE ALFA
     Indication: Bacterial disease carrier
  3. PULMOZYME [Suspect]
     Active Substance: DORNASE ALFA
     Indication: Bronchiectasis
  4. ZENPEP [Concomitant]
     Active Substance: PANCRELIPASE AMYLASE\PANCRELIPASE LIPASE\PANCRELIPASE PROTEASE
  5. CHORIONIC GONADOTROPIN [Concomitant]
     Active Substance: CHORIOGONADOTROPIN ALFA
  6. TRIKAFTA [Concomitant]
     Active Substance: ELEXACAFTOR\IVACAFTOR\TEZACAFTOR
  7. TOBI PODHALER [Concomitant]
     Active Substance: TOBRAMYCIN
  8. BUDESONIDE [Concomitant]
     Active Substance: BUDESONIDE
  9. ALBUTEROL [Concomitant]
     Active Substance: ALBUTEROL

REACTIONS (1)
  - COVID-19 [Recovered/Resolved]
